FAERS Safety Report 17859351 (Version 1)
Quarter: 2020Q2

REPORT INFORMATION
  Report Type: Spontaneous
  Country: US (occurrence: US)
  Receive Date: 20200603
  Receipt Date: 20200603
  Transmission Date: 20200714
  Serious: No
  Sender: FDA-Public Use
  Company Number: None

PATIENT
  Age: 88 Year
  Sex: Female

DRUGS (15)
  1. FERROUS GLUC TAB 240MG [Concomitant]
  2. LIDOCAINE GEL [Concomitant]
     Active Substance: LIDOCAINE HYDROCHLORIDE
  3. TYLENOL TAB 500MG [Concomitant]
  4. AMLOD/BENAZP CAP 10-20MG [Concomitant]
  5. CENTRUM TAB SILVER [Concomitant]
  6. DONEPEZIL TAB 10MG [Concomitant]
     Active Substance: DONEPEZIL
  7. ASPIRIN TAB 81MG [Concomitant]
  8. RANITIDINE TAB 150MG [Concomitant]
  9. FENOFIBRATE TAB 160MG [Concomitant]
  10. D3 SUPER STR CAP 2000 UNIT [Concomitant]
  11. PROBIOTIC CAP [Concomitant]
  12. GABAPENTIN CAP 100MG [Concomitant]
  13. DOCUSATE SOD CAP 100MG [Concomitant]
  14. SAMSCA [Suspect]
     Active Substance: TOLVAPTAN
     Route: 048
  15. PANTOPRAZOLE TAB 40MG [Concomitant]

REACTIONS (3)
  - Therapy interrupted [None]
  - Diarrhoea [None]
  - Haemorrhage [None]

NARRATIVE: CASE EVENT DATE: 20200602
